FAERS Safety Report 6046115-6 (Version None)
Quarter: 2009Q1

REPORT INFORMATION
  Report Type: 
  Country: None (occurrence: None)
  Receive Date: 20090121
  Receipt Date: 20090121
  Transmission Date: 20090719
  Serious: No
  Sender: FDA-Public Use
  Company Number: None

PATIENT
  Age: 39 Year
  Sex: Female
  Weight: 72.5755 kg

DRUGS (3)
  1. HYDROXYZINE HCL [Suspect]
     Indication: GLOSSODYNIA
     Dosage: 2 PILLS PER DOSE, 25MG PER PIL EVERY 4-6 HOURS PO
     Route: 048
     Dates: start: 20090114, end: 20090116
  2. HYDROXYZINE HCL [Suspect]
     Indication: SWOLLEN TONGUE
     Dosage: 2 PILLS PER DOSE, 25MG PER PIL EVERY 4-6 HOURS PO
     Route: 048
     Dates: start: 20090114, end: 20090116
  3. HYDROXYZINE HCL [Suspect]
     Indication: THROAT IRRITATION
     Dosage: 2 PILLS PER DOSE, 25MG PER PIL EVERY 4-6 HOURS PO
     Route: 048
     Dates: start: 20090114, end: 20090116

REACTIONS (1)
  - INTERCEPTED MEDICATION ERROR [None]
